FAERS Safety Report 4571099-7 (Version None)
Quarter: 2005Q1

REPORT INFORMATION
  Report Type: 
  Country: None (occurrence: None)
  Receive Date: 20050202
  Receipt Date: 20050125
  Transmission Date: 20050727
  Serious: Yes (Other)
  Sender: FDA-Public Use
  Company Number: 2004-11-0065

PATIENT
  Age: 34 Year
  Sex: Female
  Weight: 59 kg

DRUGS (6)
  1. INTRON A [Suspect]
     Indication: MALIGNANT MELANOMA
     Dosage: 33-10 MIU 5XWK INTRAVENOUS
     Route: 042
     Dates: start: 20031117, end: 20031121
  2. INTRON A [Suspect]
     Indication: MALIGNANT MELANOMA
     Dosage: 33-10 MIU 5XWK INTRAVENOUS
     Route: 042
     Dates: start: 20031124, end: 20031128
  3. INTRON A [Suspect]
     Indication: MALIGNANT MELANOMA
     Dosage: 33-10 MIU 5XWK INTRAVENOUS
     Route: 042
     Dates: start: 20031201, end: 20031205
  4. INTRON A [Suspect]
     Indication: MALIGNANT MELANOMA
     Dosage: 33-10 MIU 5XWK INTRAVENOUS
     Route: 042
     Dates: start: 20031208, end: 20031212
  5. INTRON A [Suspect]
     Indication: MALIGNANT MELANOMA
     Dosage: 33-10 MIU 5XWK INTRAVENOUS
     Route: 042
     Dates: start: 20031117
  6. DECADRON [Concomitant]

REACTIONS (1)
  - TUBERCULOSIS [None]
